FAERS Safety Report 12879786 (Version 1)
Quarter: 2016Q4

REPORT INFORMATION
  Report Type: Spontaneous
  Country: US (occurrence: US)
  Receive Date: 20161025
  Receipt Date: 20161025
  Transmission Date: 20170207
  Serious: No
  Sender: FDA-Public Use
  Company Number: US-BAYER-2016-205078

PATIENT
  Age: 73 Year
  Sex: Male
  Weight: 95.24 kg

DRUGS (1)
  1. ZEGERID OTC CAPSULES [Suspect]
     Active Substance: OMEPRAZOLE\SODIUM BICARBONATE
     Dosage: 1 DF, QD
     Route: 048
     Dates: start: 20161020, end: 20161024

REACTIONS (2)
  - Erythema [Not Recovered/Not Resolved]
  - Flushing [Not Recovered/Not Resolved]

NARRATIVE: CASE EVENT DATE: 20161020
